FAERS Safety Report 18129068 (Version 1)
Quarter: 2020Q3

REPORT INFORMATION
  Report Type: Spontaneous
  Country: US (occurrence: US)
  Receive Date: 20200807
  Receipt Date: 20200807
  Transmission Date: 20201103
  Serious: Yes (Hospitalization)
  Sender: FDA-Public Use
  Company Number: None

PATIENT
  Age: 76 Year
  Sex: Female

DRUGS (35)
  1. FOLIC ACID. [Concomitant]
     Active Substance: FOLIC ACID
  2. ISOSORB MONO [Concomitant]
     Active Substance: ISOSORBIDE MONONITRATE
  3. KETOROLAC [Concomitant]
     Active Substance: KETOROLAC TROMETHAMINE
  4. KRISTALOSE PAK [Concomitant]
  5. METOCLOPRAM [Concomitant]
     Active Substance: METOCLOPRAMIDE
  6. TRIAMCINOLON LOT [Concomitant]
  7. VITAMIN D [Concomitant]
     Active Substance: VITAMIN D NOS
  8. CLOBET ASOL/CLOPIDOGREL [Concomitant]
  9. DOXYCYCL HYC [Concomitant]
  10. FEXOFENADINE [Concomitant]
     Active Substance: FEXOFENADINE HYDROCHLORIDE
  11. OMEPRAZOLE. [Concomitant]
     Active Substance: OMEPRAZOLE
  12. WARFARIN [Concomitant]
     Active Substance: WARFARIN
  13. NIFEDIPINE. [Concomitant]
     Active Substance: NIFEDIPINE
  14. ROSUVASTATIN. [Concomitant]
     Active Substance: ROSUVASTATIN
  15. NIFEDIAC CC [Concomitant]
     Active Substance: NIFEDIPINE
  16. PROPO N/APAP [Concomitant]
  17. TORSEMIDE. [Concomitant]
     Active Substance: TORSEMIDE
  18. TRIAMCINOLON OIN [Concomitant]
  19. AMLODIPINE [Concomitant]
     Active Substance: AMLODIPINE BESYLATE
  20. CEPHALEXIN. [Concomitant]
     Active Substance: CEPHALEXIN
  21. FLUOCIN ACET OIN [Concomitant]
  22. BACLOFEN. [Concomitant]
     Active Substance: BACLOFEN
  23. METOPROL SUC [Concomitant]
  24. MIRTAZAPINE. [Concomitant]
     Active Substance: MIRTAZAPINE
  25. VENLAFAXINE [Concomitant]
     Active Substance: VENLAFAXINE HYDROCHLORIDE
  26. XELJANZ [Suspect]
     Active Substance: TOFACITINIB CITRATE
     Route: 048
  27. AMITIZA [Concomitant]
     Active Substance: LUBIPROSTONE
  28. EZETIMBE [Concomitant]
     Active Substance: EZETIMIBE
  29. HYDROCO/APAP [Concomitant]
     Active Substance: ACETAMINOPHEN\HYDROCODONE
  30. LEXAPRO [Concomitant]
     Active Substance: ESCITALOPRAM OXALATE
  31. TRAZODONE [Concomitant]
     Active Substance: TRAZODONE HYDROCHLORIDE
  32. METHOTREXATE. [Concomitant]
     Active Substance: METHOTREXATE
  33. OXYCODONE AND ACETAMINOPHEN [Concomitant]
     Active Substance: ACETAMINOPHEN\OXYCODONE HYDROCHLORIDE
  34. PANTOPRAZOLE [Concomitant]
     Active Substance: PANTOPRAZOLE
  35. TRAMADOL HCL [Concomitant]
     Active Substance: TRAMADOL HYDROCHLORIDE

REACTIONS (2)
  - Condition aggravated [None]
  - Hospitalisation [None]

NARRATIVE: CASE EVENT DATE: 20200801
